FAERS Safety Report 5858296-5 (Version None)
Quarter: 2008Q3

REPORT INFORMATION
  Report Type: 
  Country: None (occurrence: None)
  Receive Date: 20080826
  Receipt Date: 20080821
  Transmission Date: 20090109
  Serious: Yes (Death)
  Sender: FDA-Public Use
  Company Number: A0744504A

PATIENT
  Age: 50 Year
  Sex: Male
  Weight: 106.8 kg

DRUGS (2)
  1. AVANDIA [Suspect]
     Dosage: 4MG PER DAY
     Route: 048
     Dates: start: 20040501, end: 20040901
  2. AVANDAMET [Suspect]
     Dosage: 500MG TWICE PER DAY
     Route: 048
     Dates: start: 20041001, end: 20050501

REACTIONS (1)
  - MYOCARDIAL INFARCTION [None]
